FAERS Safety Report 9552917 (Version 1)
Quarter: 2013Q3

REPORT INFORMATION
  Report Type: Spontaneous
  Country: US (occurrence: None)
  Receive Date: 20130724
  Receipt Date: 20130724
  Transmission Date: 20140515
  Serious: Yes (Other)
  Sender: FDA-Public Use
  Company Number: PHEH2013US003016

PATIENT
  Sex: Male

DRUGS (2)
  1. GLEEVEC (IMATINIB) TABLET, 400 MG [Suspect]
     Route: 048
  2. PANTOPRAZOLE (PANTOPRAZOLE) [Concomitant]

REACTIONS (4)
  - Oesophageal ulcer [None]
  - Nausea [None]
  - Muscle spasms [None]
  - Fatigue [None]
